FAERS Safety Report 6489094-X (Version None)
Quarter: 2009Q4

REPORT INFORMATION
  Report Type: 
  Country: None (occurrence: None)
  Receive Date: 20091210
  Receipt Date: 20091203
  Transmission Date: 20100525
  Serious: Yes (Death, Other)
  Sender: FDA-Public Use
  Company Number: GB-ELI_LILLY_AND_COMPANY-GB200704005151

PATIENT
  Age: 58 Year
  Sex: Female
  Weight: 57 kg

DRUGS (2)
  1. XIGRIS [Suspect]
     Indication: SEPSIS
     Dosage: 0.024 MG/KG, EVERY HOUR
     Route: 042
     Dates: start: 20070319
  2. HEPARIN SODIUM [Concomitant]
     Dosage: 400 IU, UNK
     Route: 042

REACTIONS (3)
  - HAEMOGLOBIN DECREASED [None]
  - HAEMOTHORAX [None]
  - PNEUMOCOCCAL SEPSIS [None]
